FAERS Safety Report 10162928 (Version 2)
Quarter: 2014Q2

REPORT INFORMATION
  Report Type: Spontaneous
  Country: US (occurrence: US)
  Receive Date: 20140509
  Receipt Date: 20140529
  Transmission Date: 20141212
  Serious: No
  Sender: FDA-Public Use
  Company Number: US-PFIZER INC-2014126514

PATIENT
  Age: 42 Year
  Sex: Female
  Weight: 72.56 kg

DRUGS (8)
  1. XELJANZ [Suspect]
     Indication: RHEUMATOID ARTHRITIS
     Dosage: 5 MG, 2X/DAY
     Route: 048
     Dates: start: 201310, end: 201401
  2. METHOTREXATE [Concomitant]
     Dosage: UNK
  3. TOPAMAX [Concomitant]
     Dosage: UNK
  4. IRON [Concomitant]
     Dosage: UNK
  5. VITAMIN D [Concomitant]
     Dosage: UNK
  6. MILK THISTLE [Concomitant]
     Dosage: UNK
  7. FLUOXETINE [Concomitant]
     Dosage: UNK
  8. SOMA [Concomitant]
     Dosage: UNK

REACTIONS (1)
  - Stomatitis [Unknown]
